FAERS Safety Report 6295842-4 (Version None)
Quarter: 2009Q3

REPORT INFORMATION
  Report Type: 
  Country: None (occurrence: None)
  Receive Date: 20090804
  Receipt Date: 20090721
  Transmission Date: 20100115
  Serious: Yes (Hospitalization, Other)
  Sender: FDA-Public Use
  Company Number: US-ROCHE-641563

PATIENT
  Sex: Female
  Weight: 67.9 kg

DRUGS (11)
  1. PEGASYS [Suspect]
     Route: 058
     Dates: start: 20090219, end: 20090621
  2. RIBAVIRIN [Suspect]
     Route: 048
     Dates: start: 20090219, end: 20090621
  3. CELEXA [Concomitant]
     Indication: DEPRESSION
     Route: 048
  4. ADVAIR HFA [Concomitant]
     Indication: ASTHMA
     Dosage: DOSE REPORTED AS 100/50 MG, OTHER INDICATION: COPD
     Route: 055
  5. FOLIC ACID [Concomitant]
     Route: 048
  6. ATROVENT [Concomitant]
     Indication: ASTHMA
     Dosage: DOSE REPORTED AS : 05/2.5 ML. OTHER INDICATION: COPD, FORM: PUFF
     Route: 055
  7. SYNTHROID [Concomitant]
     Indication: HYPOTHYROIDISM
     Route: 048
  8. INDERAL [Concomitant]
     Indication: PORTAL HYPERTENSION
     Route: 048
  9. VITAMIN B1 TAB [Concomitant]
     Route: 048
  10. ULTRAM [Concomitant]
     Indication: PAIN
     Dosage: AS NESSESSARY.
     Route: 048
  11. PROCRIT [Concomitant]
     Dosage: DOSE REPORTED AS 40000 UNITS.
     Dates: start: 20090429, end: 20090624

REACTIONS (5)
  - BLOOD CREATININE INCREASED [None]
  - BLOOD UREA INCREASED [None]
  - RENAL FAILURE ACUTE [None]
  - URINARY TRACT INFECTION [None]
  - VAGINAL HAEMORRHAGE [None]
